FAERS Safety Report 17265694 (Version 1)
Quarter: 2020Q1

REPORT INFORMATION
  Report Type: Spontaneous
  Country: US (occurrence: US)
  Receive Date: 20200114
  Receipt Date: 20200114
  Transmission Date: 20200409
  Serious: No
  Sender: FDA-Public Use
  Company Number: US-TEVA-2020-US-1166145

PATIENT
  Sex: Female

DRUGS (3)
  1. WARFARIN [Suspect]
     Active Substance: WARFARIN
     Indication: AORTIC VALVE DISEASE
     Route: 065
     Dates: start: 201911, end: 20191226
  2. WARFARIN [Suspect]
     Active Substance: WARFARIN
     Route: 065
     Dates: start: 20191228
  3. WARFARIN [Suspect]
     Active Substance: WARFARIN
     Route: 065
     Dates: start: 20191229

REACTIONS (1)
  - Headache [Unknown]

NARRATIVE: CASE EVENT DATE: 201911
